FAERS Safety Report 9716792 (Version 1)
Quarter: 2013Q4

REPORT INFORMATION
  Report Type: Spontaneous
  Country: US (occurrence: None)
  Receive Date: 20131126
  Receipt Date: 20131126
  Transmission Date: 20140711
  Serious: Yes (Hospitalization)
  Sender: FDA-Public Use
  Company Number: None

PATIENT
  Age: 38 Year
  Sex: Male
  Weight: 85.73 kg

DRUGS (2)
  1. CLINDAMYCIN [Suspect]
     Indication: DENTAL OPERATION
  2. CLINDAMYCIN [Suspect]
     Indication: PROPHYLAXIS

REACTIONS (4)
  - Diarrhoea [None]
  - Nausea [None]
  - Vomiting [None]
  - Clostridium difficile infection [None]
